FAERS Safety Report 6145251-3 (Version None)
Quarter: 2009Q2

REPORT INFORMATION
  Report Type: 
  Country: None (occurrence: None)
  Receive Date: 20090406
  Receipt Date: 20090402
  Transmission Date: 20091009
  Serious: Yes (Other)
  Sender: FDA-Public Use
  Company Number: US-GILEAD-2009-0019714

PATIENT
  Sex: Female
  Weight: 81.72 kg

DRUGS (12)
  1. LETAIRIS [Suspect]
     Indication: PULMONARY ARTERIAL HYPERTENSION
     Route: 048
     Dates: start: 20081219
  2. PROTONIX [Concomitant]
  3. PLAQUENIL [Concomitant]
  4. TRICOR [Concomitant]
  5. SUDAFED 12 HR [Concomitant]
  6. BIOTIN [Concomitant]
  7. MOBIC [Concomitant]
  8. LEVOXYL [Concomitant]
  9. BENADRYL [Concomitant]
  10. WELCHOL [Concomitant]
  11. CRANBERRY [Concomitant]
  12. BLACKMORES FISH OIL [Concomitant]

REACTIONS (2)
  - ARRHYTHMIA [None]
  - PALPITATIONS [None]
